FAERS Safety Report 9416668 (Version 2)
Quarter: 2013Q3

REPORT INFORMATION
  Report Type: Spontaneous
  Country: US (occurrence: US)
  Receive Date: 20130724
  Receipt Date: 20130826
  Transmission Date: 20140515
  Serious: Yes (Hospitalization, Other)
  Sender: FDA-Public Use
  Company Number: US-ASTELLAS-2013US007675

PATIENT
  Age: 48 Year
  Sex: Male

DRUGS (13)
  1. PROGRAF [Suspect]
     Indication: RENAL TRANSPLANT
     Dosage: 4 MG, BID
     Route: 048
     Dates: start: 20060714
  2. METOPROLOL [Concomitant]
     Indication: PRODUCT USED FOR UNKNOWN INDICATION
     Dosage: 100 MG, BID
     Route: 065
  3. LORTAB                             /00607101/ [Concomitant]
     Indication: PAIN
     Dosage: 10 MG, PRN
     Route: 065
  4. MAGNESIUM OXIDE [Concomitant]
     Indication: PRODUCT USED FOR UNKNOWN INDICATION
     Dosage: UNK
     Route: 065
  5. NEXIUM                             /01479302/ [Concomitant]
     Indication: PRODUCT USED FOR UNKNOWN INDICATION
     Dosage: 40 MG, UID/QD
     Route: 065
  6. LISINOPRIL [Concomitant]
     Indication: PRODUCT USED FOR UNKNOWN INDICATION
     Dosage: BID, 20 MG IN THE AM, 40 MG IN THE PM
     Route: 065
  7. BACTRIM [Concomitant]
     Indication: PRODUCT USED FOR UNKNOWN INDICATION
     Dosage: 400-80 MG BIWEEKLY.
     Route: 065
  8. ASPIRIN [Concomitant]
     Indication: PRODUCT USED FOR UNKNOWN INDICATION
     Dosage: 81 MG, UID/QD
     Route: 065
  9. HYDRALAZINE [Concomitant]
     Indication: PRODUCT USED FOR UNKNOWN INDICATION
     Dosage: 25 MG, BID
     Route: 065
  10. PREDNISONE [Concomitant]
     Indication: PRODUCT USED FOR UNKNOWN INDICATION
     Dosage: 5 MG, UID/QD
     Route: 065
  11. ATORVASTATIN [Concomitant]
     Indication: PRODUCT USED FOR UNKNOWN INDICATION
     Dosage: 40 MG, BID
     Route: 065
  12. LASIX                              /00032601/ [Concomitant]
     Indication: PRODUCT USED FOR UNKNOWN INDICATION
     Dosage: 40 MG, BID
     Route: 065
  13. ALPRAZOLAM [Concomitant]
     Indication: PRODUCT USED FOR UNKNOWN INDICATION
     Dosage: 2 MG, PRN, AT NIGHT

REACTIONS (13)
  - Systemic inflammatory response syndrome [Recovered/Resolved]
  - Osteoarthritis [Unknown]
  - Myositis [Unknown]
  - Spinal disorder [Unknown]
  - Gout [Unknown]
  - Hyperlipidaemia [Unknown]
  - Heart rate irregular [Unknown]
  - Atrial fibrillation [Unknown]
  - Renal cyst [Unknown]
  - Joint injury [Unknown]
  - Ankle fracture [Unknown]
  - Blood parathyroid hormone increased [Unknown]
  - Blood calcium increased [Unknown]
